FAERS Safety Report 6139030-0 (Version None)
Quarter: 2009Q1

REPORT INFORMATION
  Report Type: 
  Country: None (occurrence: None)
  Receive Date: 20090324
  Receipt Date: 20090316
  Transmission Date: 20090719
  Serious: Yes (Other)
  Sender: FDA-Public Use
  Company Number: 231509K09USA

PATIENT
  Age: 56 Year
  Sex: Female
  Weight: 68 kg

DRUGS (12)
  1. REBIF [Suspect]
     Indication: MULTIPLE SCLEROSIS
     Dosage: SEE IMAGE
     Route: 058
     Dates: start: 20090101, end: 20090101
  2. REBIF [Suspect]
     Indication: MULTIPLE SCLEROSIS
     Dosage: SEE IMAGE
     Route: 058
     Dates: start: 20090204, end: 20090201
  3. REBIF [Suspect]
     Indication: MULTIPLE SCLEROSIS
     Dosage: SEE IMAGE
     Route: 058
     Dates: start: 20090123, end: 20090204
  4. REBIF [Suspect]
     Indication: MULTIPLE SCLEROSIS
     Dosage: SEE IMAGE
     Route: 058
     Dates: start: 20090101, end: 20090301
  5. ESTROGENIC SUBSTANCE [Concomitant]
  6. PROGESTERONE [Concomitant]
  7. AMBIEN [Concomitant]
  8. TYLENOL (COTYLENOL) [Concomitant]
  9. TRAMADOL HCL [Concomitant]
  10. CALTRATE (CALCIUM CARBONATE) [Concomitant]
  11. VITAMIN D [Concomitant]
  12. IBUPROFEN [Concomitant]

REACTIONS (7)
  - CHEST DISCOMFORT [None]
  - CHEST PAIN [None]
  - CHILLS [None]
  - DISCOMFORT [None]
  - DYSPNOEA [None]
  - OROPHARYNGEAL PAIN [None]
  - VENTRICULAR EXTRASYSTOLES [None]
